FAERS Safety Report 6226835-0 (Version None)
Quarter: 2009Q2

REPORT INFORMATION
  Report Type: 
  Country: None (occurrence: None)
  Receive Date: 20090612
  Receipt Date: 20090521
  Transmission Date: 20091009
  Serious: No
  Sender: FDA-Public Use
  Company Number: US-ABBOTT-09P-163-0574994-00

PATIENT
  Sex: Female
  Weight: 25.424 kg

DRUGS (2)
  1. HUMIRA [Suspect]
     Indication: JUVENILE ARTHRITIS
     Dates: start: 20081101
  2. HUMIRA [Suspect]
     Dates: start: 20090511

REACTIONS (4)
  - ARTHRITIS [None]
  - JOINT SWELLING [None]
  - RESPIRATORY TRACT INFECTION [None]
  - UVEITIS [None]
